FAERS Safety Report 9726635 (Version 2)
Quarter: 2014Q1

REPORT INFORMATION
  Report Type: Spontaneous
  Country: CZ (occurrence: CZ)
  Receive Date: 20131203
  Receipt Date: 20140306
  Transmission Date: 20141002
  Serious: Yes (Death, Other)
  Sender: FDA-Public Use
  Company Number: CZ-BAYER-2013-144573

PATIENT
  Age: 85 Year
  Sex: Female

DRUGS (7)
  1. ULTRAVIST [Suspect]
     Dosage: 115 ML, ONCE
     Route: 042
     Dates: start: 20131113, end: 20131113
  2. SYNTOPHYLLIN [Concomitant]
     Route: 042
  3. ANOPYRIN [Concomitant]
     Dosage: 100 MG, UNK
  4. SECTRAL [Concomitant]
     Dosage: 400 MG, UNK
  5. MEDOCLAV [Concomitant]
     Dosage: 1.2 MG, UNK
     Route: 042
  6. PRESTARIUM NEO [Concomitant]
  7. KLACID [Concomitant]
     Dosage: 500 MG, UNK
     Route: 048

REACTIONS (2)
  - Superior mesenteric artery syndrome [Fatal]
  - Cardiac arrest [Fatal]
